FAERS Safety Report 9171456 (Version 3)
Quarter: 2014Q1

REPORT INFORMATION
  Report Type: Report from Study
  Country: NZ (occurrence: NZ)
  Receive Date: 20130319
  Receipt Date: 20140321
  Transmission Date: 20141002
  Serious: Yes (Other)
  Sender: FDA-Public Use
  Company Number: NZ-ROCHE-1203587

PATIENT
  Sex: 0

DRUGS (3)
  1. SOFOSBUVIR [Suspect]
     Indication: HEPATITIS C
     Dosage: FOR 12 WEEKS
     Route: 048
  2. SOFOSBUVIR [Suspect]
     Indication: HEPATITIS C
  3. RIBAVIRIN [Suspect]
     Indication: HEPATITIS C
     Dosage: BASED ON BODY WEIGHT
     Route: 048

REACTIONS (1)
  - Urethral injury [Unknown]
